FAERS Safety Report 14190603 (Version 2)
Quarter: 2017Q4

REPORT INFORMATION
  Report Type: Spontaneous
  Country: TR (occurrence: TR)
  Receive Date: 20171115
  Receipt Date: 20171120
  Transmission Date: 20180321
  Serious: Yes (Other)
  Sender: FDA-Public Use
  Company Number: PHHY2017TR168307

PATIENT
  Sex: Female

DRUGS (2)
  1. ETANERCEPT [Suspect]
     Active Substance: ETANERCEPT
     Indication: PATERNAL EXPOSURE DURING PREGNANCY
  2. METHOTREXATE INJECTION [Suspect]
     Active Substance: METHOTREXATE
     Indication: PATERNAL EXPOSURE DURING PREGNANCY

REACTIONS (3)
  - Exposure via partner [Unknown]
  - Oligohydramnios [Unknown]
  - Normal newborn [Unknown]
